FAERS Safety Report 8958393 (Version 1)
Quarter: 2012Q4

REPORT INFORMATION
  Report Type: 
  Country: FR (occurrence: FR)
  Receive Date: 20121210
  Receipt Date: 20121210
  Transmission Date: 20130627
  Serious: Yes (Hospitalization)
  Sender: FDA-Public Use
  Company Number: FR-GLAXOSMITHKLINE-B0849317A

PATIENT
  Age: 81 Year
  Sex: Male

DRUGS (5)
  1. ARIXTRA [Suspect]
     Indication: PULMONARY EMBOLISM
     Dosage: 7.5MG Per day
     Route: 058
     Dates: start: 20120711, end: 20120715
  2. CALCIPARINE [Suspect]
     Indication: PULMONARY EMBOLISM
     Dosage: 1UNIT Three times per day
     Route: 058
     Dates: start: 20120715, end: 20120814
  3. LOVENOX [Suspect]
     Indication: THROMBOSIS PROPHYLAXIS
     Route: 058
     Dates: start: 20120706, end: 20120711
  4. KARDEGIC [Concomitant]
     Dosage: 1UNIT Per day
     Route: 048
  5. SEROPLEX [Concomitant]
     Dosage: 1UNIT Per day
     Route: 048

REACTIONS (10)
  - Haematoma [Recovered/Resolved]
  - Lung infection [Unknown]
  - Sepsis syndrome [Unknown]
  - Oedema [Unknown]
  - Joint stiffness [Unknown]
  - Arthralgia [Unknown]
  - Motor dysfunction [Unknown]
  - Hyperaesthesia [Unknown]
  - Subcutaneous haematoma [Unknown]
  - Musculoskeletal stiffness [Unknown]
